FAERS Safety Report 9464870 (Version 1)
Quarter: 2013Q3

REPORT INFORMATION
  Report Type: Spontaneous
  Country: IT (occurrence: IT)
  Receive Date: 20130819
  Receipt Date: 20130819
  Transmission Date: 20140515
  Serious: Yes (Hospitalization)
  Sender: FDA-Public Use
  Company Number: PHHY2013IT087348

PATIENT
  Sex: Female

DRUGS (12)
  1. METHOTREXATE [Suspect]
     Dosage: 10 MG, QW
     Route: 048
     Dates: start: 20130529, end: 20130529
  2. DELTACORTENE [Suspect]
     Dosage: 12.3 MG, QD
     Route: 048
     Dates: start: 20130529, end: 20130529
  3. HUMALOG [Concomitant]
     Indication: DIABETES MELLITUS
  4. LANTUS [Concomitant]
     Indication: DIABETES MELLITUS
  5. LANSOX [Concomitant]
  6. SOTALEX [Concomitant]
  7. SEACOR [Concomitant]
  8. ENAPREN [Concomitant]
  9. CARDIRENE [Concomitant]
  10. SIVASTIN [Concomitant]
  11. DIBASE [Concomitant]
  12. FOLINA [Concomitant]

REACTIONS (3)
  - Myelodysplastic syndrome [Recovering/Resolving]
  - Febrile neutropenia [Recovering/Resolving]
  - Pneumonia [Recovering/Resolving]
